FAERS Safety Report 8380076-X (Version None)
Quarter: 2012Q2

REPORT INFORMATION
  Report Type: 
  Country: None (occurrence: None)
  Receive Date: 20120523
  Receipt Date: 20120510
  Transmission Date: 20120825
  Serious: Yes (Hospitalization)
  Sender: FDA-Public Use
  Company Number: US-GLAXOSMITHKLINE-B0746985A

PATIENT
  Age: 49 Year
  Sex: Male
  Weight: 129.5 kg

DRUGS (4)
  1. GABAPENTIN [Concomitant]
  2. ZOCOR [Concomitant]
  3. LISINOPRIL [Concomitant]
  4. AVANDIA [Suspect]
     Indication: DIABETES MELLITUS
     Dosage: 8MG TWICE PER DAY
     Route: 048
     Dates: start: 20010101, end: 20040101

REACTIONS (3)
  - PALPITATIONS [None]
  - CEREBROVASCULAR ACCIDENT [None]
  - ARTERIAL OCCLUSIVE DISEASE [None]
